FAERS Safety Report 9521969 (Version 1)
Quarter: 2013Q3

REPORT INFORMATION
  Report Type: Spontaneous
  Country: TR (occurrence: None)
  Receive Date: 20130911
  Receipt Date: 20130911
  Transmission Date: 20140515
  Serious: Yes (Other)
  Sender: FDA-Public Use
  Company Number: SYM-2013-10525

PATIENT
  Sex: 0

DRUGS (5)
  1. FLUOROURACIL (FLUOROURACIL) (FLUOROURACIL) [Suspect]
     Indication: ADENOCARCINOMA GASTRIC
     Dosage: EVERY OTHER WEEK BOLUS
     Route: 042
  2. CISPLATIN (CISPLATIN) (CISPLATIN) [Suspect]
     Indication: ADENOCARCINOMA GASTRIC
     Dosage: EVERY OTHER WEEK BOLUS
     Route: 042
  3. DOCETAXEL (DOCETAXEL) (DOCETAXEL) [Suspect]
     Indication: ADENOCARCINOMA GASTRIC
     Dosage: EVERY OTHER WEEK BOLUS
     Route: 042
  4. LEUCOVORIN (FOLINIC ACID) (FOLINIC ACID) [Suspect]
     Indication: ADENOCARCINOMA GASTRIC
     Dosage: EVERY OTHER WEEK BOLUS
     Route: 042
  5. GRANULOCYTE CLONY STIMULATING FACTOR (GRANULOCYTE CLONY STIMULATING FACTOR) (GRANULOCYTE CLONY STIMULATING FACTOR) [Concomitant]

REACTIONS (1)
  - Nephropathy toxic [None]
